FAERS Safety Report 8827400 (Version 1)
Quarter: 2012Q4

REPORT INFORMATION
  Report Type: 
  Country: US (occurrence: US)
  Receive Date: 20121005
  Receipt Date: 20121005
  Transmission Date: 20130627
  Serious: No
  Sender: FDA-Public Use
  Company Number: US-BRISTOL-MYERS SQUIBB COMPANY-16453714

PATIENT
  Age: 67 Year
  Sex: Male

DRUGS (1)
  1. AVAPRO TABS 150 MG [Suspect]
     Dosage: 1df=one-half tablet every day

REACTIONS (1)
  - Blood pressure increased [Recovered/Resolved]
